FAERS Safety Report 4479179-1 (Version None)
Quarter: 2004Q4

REPORT INFORMATION
  Report Type: 
  Country: None (occurrence: None)
  Receive Date: 20041019
  Receipt Date: 20041019
  Transmission Date: 20050328
  Serious: Yes (Other)
  Sender: FDA-Public Use
  Company Number: None

PATIENT
  Age: 49 Year
  Sex: Female
  Weight: 90.7194 kg

DRUGS (2)
  1. LIPITOR [Suspect]
     Indication: METABOLIC SYNDROME
     Dosage: SEE IMAGE
     Dates: start: 20041007
  2. LIPITOR [Suspect]
     Indication: METABOLIC SYNDROME
     Dosage: SEE IMAGE
     Dates: start: 20041012

REACTIONS (3)
  - DIPLOPIA [None]
  - DRY EYE [None]
  - VISION BLURRED [None]
